FAERS Safety Report 4370459-7 (Version None)
Quarter: 2004Q2

REPORT INFORMATION
  Report Type: 
  Country: None (occurrence: None)
  Receive Date: 20040603
  Receipt Date: 20040129
  Transmission Date: 20050107
  Serious: Yes (Other)
  Sender: FDA-Public Use
  Company Number: US-BRISTOL-MYERS SQUIBB COMPANY-12491759

PATIENT
  Age: 50 Year
  Sex: Female

DRUGS (7)
  1. ABILIFY [Suspect]
     Indication: PSYCHOTIC DISORDER
     Dosage: DOSE REDUCED ON 29-AUG-03 TO 10 MG/DAY (PREVIOUS DOSE 10 MG BID), THEN D/C
     Route: 048
     Dates: start: 20030728
  2. ZOLOFT [Suspect]
     Dosage: DOSE REDUCED (POST EVENT, NO DATE REPORTED) TO 100 MG/DAY
     Route: 048
     Dates: start: 20020611
  3. GABITRIL [Concomitant]
  4. PROVIGIL [Concomitant]
  5. DEPAKOTE [Concomitant]
  6. DILANTIN [Concomitant]
  7. CLONAZEPAM [Concomitant]

REACTIONS (1)
  - CONVULSION [None]
